FAERS Safety Report 4867297-5 (Version None)
Quarter: 2005Q4

REPORT INFORMATION
  Report Type: 
  Country: None (occurrence: None)
  Receive Date: 20051227
  Receipt Date: 20051227
  Transmission Date: 20060501
  Serious: Yes (Life-Threatening, Hospitalization)
  Sender: FDA-Public Use
  Company Number: None

PATIENT
  Age: 59 Year
  Sex: Male
  Weight: 106.6 kg

DRUGS (10)
  1. KEPPRA [Suspect]
     Indication: CONVULSION PROPHYLAXIS
     Dosage: 500MG BID PO
     Route: 048
     Dates: start: 20051123, end: 20051204
  2. NOVOLIN R [Concomitant]
  3. NOVOLIN N [Concomitant]
  4. DILANTIN [Concomitant]
  5. COZAAR [Concomitant]
  6. MS CONTIN [Concomitant]
  7. NICOBID [Concomitant]
  8. ZOFRAN [Concomitant]
  9. LEXAPRO [Concomitant]
  10. CRESTOR [Concomitant]

REACTIONS (4)
  - HYPOTENSION [None]
  - PANCYTOPENIA [None]
  - PROTEUS INFECTION [None]
  - UROSEPSIS [None]
